FAERS Safety Report 25884385 (Version 1)
Quarter: 2025Q4

REPORT INFORMATION
  Report Type: Spontaneous
  Country: BB (occurrence: BB)
  Receive Date: 20251006
  Receipt Date: 20251006
  Transmission Date: 20260117
  Serious: Yes (Hospitalization, Other)
  Sender: MSN LABORATORIES PRIVATE LIMITED
  Company Number: BB-MSNLABS-2025MSNLIT02882

PATIENT

DRUGS (2)
  1. ABIRATERONE ACETATE [Suspect]
     Active Substance: ABIRATERONE ACETATE
     Indication: Prostate cancer stage IV
     Dosage: 1,000 MG DAILY (FOUR 250 MG TABLETS)
     Route: 065
     Dates: start: 2024, end: 20250428
  2. PREDNISONE [Suspect]
     Active Substance: PREDNISONE
     Indication: Prostate cancer stage IV
     Dosage: LOW-DOSE
     Route: 065
     Dates: start: 2024

REACTIONS (2)
  - Diabetic ketoacidosis [Recovering/Resolving]
  - Type 2 diabetes mellitus [Unknown]

NARRATIVE: CASE EVENT DATE: 20250101
